FAERS Safety Report 16734609 (Version 1)
Quarter: 2019Q3

REPORT INFORMATION
  Report Type: Report from Study
  Country: US (occurrence: US)
  Receive Date: 20190823
  Receipt Date: 20190823
  Transmission Date: 20191005
  Serious: Yes (Other)
  Sender: FDA-Public Use
  Company Number: PHEH2019US033755

PATIENT
  Age: 64 Year
  Sex: Female

DRUGS (1)
  1. MAYZENT [Suspect]
     Active Substance: SIPONIMOD
     Indication: PRODUCT USED FOR UNKNOWN INDICATION
     Dosage: 2 MG, QD
     Route: 048
     Dates: start: 20190717, end: 20190813

REACTIONS (4)
  - Diplopia [Unknown]
  - Loss of consciousness [Unknown]
  - Urinary incontinence [Unknown]
  - Seizure [Unknown]

NARRATIVE: CASE EVENT DATE: 20190809
